FAERS Safety Report 8480379-4 (Version None)
Quarter: 2012Q3

REPORT INFORMATION
  Report Type: 
  Country: None (occurrence: None)
  Receive Date: 20120702
  Receipt Date: 20120626
  Transmission Date: 20120928
  Serious: Yes (Other)
  Sender: FDA-Public Use
  Company Number: CA-ROCHE-1064512

PATIENT
  Sex: Female

DRUGS (3)
  1. XOLAIR [Suspect]
     Indication: ASTHMA
  2. SINUS RINSE (UNK INGREDIENTS) [Concomitant]
  3. XOLAIR [Suspect]
     Indication: SINUSITIS
     Route: 058
     Dates: start: 20110822

REACTIONS (5)
  - INJECTION SITE DISCOMFORT [None]
  - HYPERTENSION [None]
  - SINUSITIS [None]
  - BLOOD PRESSURE INCREASED [None]
  - COUGH [None]
